FAERS Safety Report 4787350-4 (Version None)
Quarter: 2005Q4

REPORT INFORMATION
  Report Type: 
  Country: None (occurrence: None)
  Receive Date: 20051003
  Receipt Date: 20050919
  Transmission Date: 20060501
  Serious: Yes (Hospitalization)
  Sender: FDA-Public Use
  Company Number: 217939

PATIENT
  Age: 60 Year
  Sex: Male

DRUGS (2)
  1. RAPTIVA [Suspect]
     Indication: PSORIASIS
  2. LIPITOR [Concomitant]

REACTIONS (3)
  - JAUNDICE [None]
  - PYREXIA [None]
  - WHITE BLOOD CELL COUNT INCREASED [None]
